FAERS Safety Report 5926196-8 (Version None)
Quarter: 2008Q4

REPORT INFORMATION
  Report Type: 
  Country: None (occurrence: None)
  Receive Date: 20081017
  Receipt Date: 20081002
  Transmission Date: 20090506
  Serious: No
  Sender: FDA-Public Use
  Company Number: DSU-2008-01597

PATIENT
  Age: 81 Year
  Sex: Male

DRUGS (1)
  1. WELCHOL [Suspect]
     Indication: DRUG USE FOR UNKNOWN INDICATION
     Dosage: 3750 MG (1250 MG, TID), PER ORAL
     Route: 048

REACTIONS (1)
  - DYSPHAGIA [None]
